FAERS Safety Report 14106422 (Version 3)
Quarter: 2018Q1

REPORT INFORMATION
  Report Type: Report from Study
  Country: US (occurrence: US)
  Receive Date: 20171019
  Receipt Date: 20180206
  Transmission Date: 20180508
  Serious: No
  Sender: FDA-Public Use
  Company Number: PHEH2017US033215

PATIENT
  Sex: Female

DRUGS (1)
  1. ENTRESTO [Suspect]
     Active Substance: SACUBITRIL\VALSARTAN
     Indication: PRODUCT USED FOR UNKNOWN INDICATION
     Dosage: 100 MG (49MG OF SACUBITRIL AND 51MG OF VALSARTAN), BID
     Route: 048

REACTIONS (3)
  - Blood pressure diastolic decreased [Unknown]
  - Blood pressure increased [Unknown]
  - Dyspnoea [Unknown]
